FAERS Safety Report 23331190 (Version 1)
Quarter: 2023Q4

REPORT INFORMATION
  Report Type: Report from Study
  Country: US (occurrence: US)
  Receive Date: 20231222
  Receipt Date: 20231222
  Transmission Date: 20240110
  Serious: Yes (Hospitalization)
  Sender: FDA-Public Use
  Company Number: US-GILEAD-2023-0655550

PATIENT
  Age: 7 Year
  Sex: Male

DRUGS (18)
  1. AZTREONAM LYSINE [Suspect]
     Active Substance: AZTREONAM LYSINE
     Indication: Chronic respiratory failure
     Dosage: 1 DOSAGE FORM, TID
     Route: 055
     Dates: start: 20221216
  2. FLINTSTONES [Concomitant]
  3. AZITHROMYCIN [Concomitant]
     Active Substance: AZITHROMYCIN
  4. LEVALBUTEROL [Concomitant]
     Active Substance: LEVALBUTEROL
  5. IPRATROPIUM [Concomitant]
     Active Substance: IPRATROPIUM
  6. SODIUM CHLORIDE [Concomitant]
     Active Substance: SODIUM CHLORIDE
  7. LANSOPRAZOLE [Concomitant]
     Active Substance: LANSOPRAZOLE
  8. SYSTANE (HYPROMELLOSE 2910 (4000 MPA.S)) [Concomitant]
     Active Substance: HYPROMELLOSE 2910 (4000 MPA.S)
  9. CARBOMER [Concomitant]
     Active Substance: CARBOMER
  10. FLUTICASONE [Concomitant]
     Active Substance: FLUTICASONE
  11. CIPROFLOXACIN [Concomitant]
     Active Substance: CIPROFLOXACIN
  12. BUDESONIDE [Concomitant]
     Active Substance: BUDESONIDE
  13. PULMOZYME [Concomitant]
     Active Substance: DORNASE ALFA
  14. BACLOFEN [Concomitant]
     Active Substance: BACLOFEN
  15. FAMOTIDINE [Concomitant]
     Active Substance: FAMOTIDINE
  16. GABAPENTIN [Concomitant]
     Active Substance: GABAPENTIN
  17. MAXIDEX [Concomitant]
     Active Substance: DEXAMETHASONE
  18. TOBRAMYCIN [Concomitant]
     Active Substance: TOBRAMYCIN

REACTIONS (3)
  - Increased viscosity of bronchial secretion [Unknown]
  - Diaphragmatic disorder [Unknown]
  - Off label use [Unknown]
